FAERS Safety Report 16437940 (Version 2)
Quarter: 2019Q2

REPORT INFORMATION
  Report Type: Spontaneous
  Country: FR (occurrence: FR)
  Receive Date: 20190617
  Receipt Date: 20190621
  Transmission Date: 20190711
  Serious: Yes (Hospitalization)
  Sender: FDA-Public Use
  Company Number: FR-TEVA-2019-FR-1063213

PATIENT
  Age: 68 Year
  Sex: Male

DRUGS (9)
  1. AUGMENTIN [Concomitant]
     Active Substance: AMOXICILLIN\CLAVULANATE POTASSIUM
  2. AMOXICILLINE BASE [Concomitant]
     Active Substance: AMOXICILLIN
  3. OLANZAPINE. [Suspect]
     Active Substance: OLANZAPINE
     Indication: AFFECTIVE DISORDER
     Route: 048
     Dates: start: 2017, end: 20190509
  4. DEPAKOTE [Suspect]
     Active Substance: DIVALPROEX SODIUM
     Indication: AFFECTIVE DISORDER
     Route: 048
     Dates: start: 2017, end: 20190510
  5. LOXAPINE BASE [Suspect]
     Active Substance: LOXAPINE
     Indication: AFFECTIVE DISORDER
     Route: 048
     Dates: start: 20190502, end: 20190507
  6. TROPATEPINE (CHLORHYDRATE DE) [Concomitant]
     Active Substance: TROPATEPINE HYDROCHLORIDE
  7. CANDESARTAN CILEXETIL. [Concomitant]
     Active Substance: CANDESARTAN CILEXETIL
  8. ENOXAPARINE SODIQUE ((MAMMIFERE/PORC/MUQUEUSE INTESTINALE)) [Concomitant]
     Active Substance: ENOXAPARIN SODIUM
  9. DIAZEPAM. [Suspect]
     Active Substance: DIAZEPAM
     Indication: AFFECTIVE DISORDER
     Route: 048
     Dates: start: 20190426, end: 20190507

REACTIONS (4)
  - Gait disturbance [Recovering/Resolving]
  - Somnolence [Recovering/Resolving]
  - Speech disorder [Recovering/Resolving]
  - Confusional state [Recovering/Resolving]

NARRATIVE: CASE EVENT DATE: 201904
